FAERS Safety Report 5281782-6 (Version None)
Quarter: 2007Q1

REPORT INFORMATION
  Report Type: 
  Country: None (occurrence: None)
  Receive Date: 20070330
  Receipt Date: 20070328
  Transmission Date: 20070707
  Serious: Yes (Other)
  Sender: FDA-Public Use
  Company Number: DE-GLAXOSMITHKLINE-D0052656A

PATIENT
  Age: 70 Year
  Sex: Male

DRUGS (2)
  1. ARIXTRA [Suspect]
     Dosage: 7.5MG PER DAY
     Route: 065
     Dates: start: 20070306, end: 20070316
  2. MARCUMAR [Concomitant]
     Route: 065

REACTIONS (5)
  - ANOREXIA [None]
  - DIZZINESS [None]
  - HAEMORRHAGE [None]
  - MOVEMENT DISORDER [None]
  - NAUSEA [None]
